FAERS Safety Report 16261744 (Version 5)
Quarter: 2019Q2

REPORT INFORMATION
  Report Type: Report from Study
  Country: US (occurrence: US)
  Receive Date: 20190501
  Receipt Date: 20190624
  Transmission Date: 20190711
  Serious: Yes (Hospitalization)
  Sender: FDA-Public Use
  Company Number: US-PFIZER INC-2019182167

PATIENT
  Age: 72 Year
  Sex: Female
  Weight: 64.49 kg

DRUGS (5)
  1. ZOLEDRONIC ACID [Concomitant]
     Active Substance: ZOLEDRONIC ACID
     Indication: METASTASES TO BONE
     Dosage: UNK, MONTHLY
     Route: 042
     Dates: start: 20190410
  2. CARBOPLATIN. [Suspect]
     Active Substance: CARBOPLATIN
     Indication: BREAST CANCER
     Dosage: 269 MG, ONE TIME ONLY
     Route: 042
     Dates: start: 20190403, end: 20190403
  3. PALBOCICLIB [Suspect]
     Active Substance: PALBOCICLIB
     Indication: BREAST CANCER METASTATIC
     Dosage: 125 MG, DAILY
     Route: 048
     Dates: start: 20190209, end: 20190327
  4. GEMZAR [Concomitant]
     Active Substance: GEMCITABINE HYDROCHLORIDE
     Indication: BREAST CANCER
     Dosage: UNK
     Route: 042
     Dates: start: 20190403
  5. CIPROFLOXACIN. [Concomitant]
     Active Substance: CIPROFLOXACIN
     Indication: NEUTROPENIA
     Dosage: UNK
     Route: 048
     Dates: start: 20190410, end: 20190424

REACTIONS (1)
  - Acute kidney injury [Recovered/Resolved]

NARRATIVE: CASE EVENT DATE: 20190424
